FAERS Safety Report 20757836 (Version 1)
Quarter: 2022Q2

REPORT INFORMATION
  Report Type: Spontaneous
  Country: US (occurrence: None)
  Receive Date: 20220427
  Receipt Date: 20220427
  Transmission Date: 20220721
  Serious: No
  Sender: FDA-Public Use
  Company Number: None

PATIENT
  Sex: Female

DRUGS (1)
  1. TALTZ [Suspect]
     Active Substance: IXEKIZUMAB
     Indication: Psoriasis
     Dosage: FREQUENCY : EVERY OTHER WEEK;?
     Route: 058
     Dates: start: 202202, end: 202203

REACTIONS (7)
  - Pruritus [None]
  - Burning sensation [None]
  - Pain [None]
  - Cough [None]
  - Diarrhoea [None]
  - Drug ineffective [None]
  - Injection related reaction [None]
